FAERS Safety Report 4940627-1 (Version None)
Quarter: 2006Q1

REPORT INFORMATION
  Report Type: 
  Country: None (occurrence: None)
  Receive Date: 20060206
  Receipt Date: 20050720
  Transmission Date: 20060701
  Serious: Yes (Hospitalization)
  Sender: FDA-Public Use
  Company Number: MEDI-0003560

PATIENT
  Age: 17 Year
  Sex: Male

DRUGS (9)
  1. ETHYOL [Suspect]
     Dosage: 500 MG, SUBCUTANEOUS
     Route: 058
     Dates: start: 20050627, end: 20050711
  2. ETHYOL [Suspect]
  3. ETHYOL [Suspect]
  4. RADIATION THERAPY [Concomitant]
  5. ZOFRAN [Concomitant]
  6. PRILOSEC [Concomitant]
  7. FOSAMAX [Concomitant]
  8. BACTRIM [Concomitant]
  9. MAGNESIUM (MAGNESIUM) [Concomitant]

REACTIONS (2)
  - NAUSEA [None]
  - VOMITING [None]
